FAERS Safety Report 10048687 (Version 1)
Quarter: 2014Q1

REPORT INFORMATION
  Report Type: Spontaneous
  Country: FR (occurrence: FR)
  Receive Date: 20140331
  Receipt Date: 20140331
  Transmission Date: 20141002
  Serious: Yes (Life-Threatening, Hospitalization)
  Sender: FDA-Public Use
  Company Number: FR-BRISTOL-MYERS SQUIBB COMPANY-20565503

PATIENT
  Age: 85 Year
  Sex: Female

DRUGS (8)
  1. COUMADINE [Suspect]
     Route: 048
  2. TEMERIT [Concomitant]
  3. OGAST [Concomitant]
  4. AERIUS [Concomitant]
  5. NOVATREX [Concomitant]
  6. COLECALCIFEROL [Concomitant]
  7. SPECIAFOLDINE [Concomitant]
  8. NORFLOXACIN [Concomitant]
     Indication: URINARY TRACT INFECTION
     Dates: start: 20131115, end: 20131125

REACTIONS (2)
  - Haemorrhagic stroke [Recovered/Resolved with Sequelae]
  - Coma [Recovered/Resolved with Sequelae]
